FAERS Safety Report 23673448 (Version 2)
Quarter: 2024Q2

REPORT INFORMATION
  Report Type: Report from Study
  Country: CA (occurrence: CA)
  Receive Date: 20240326
  Receipt Date: 20240418
  Transmission Date: 20240715
  Serious: Yes (Other)
  Sender: FDA-Public Use
  Company Number: CA-BAYER-2024A042269

PATIENT
  Sex: Male

DRUGS (2)
  1. EYLEA [Suspect]
     Active Substance: AFLIBERCEPT
     Indication: Retinal vein occlusion
     Dosage: 2 MG, Q4WK, INTRAVITREAL IN RIGHT EYE, 40 MG/ML
     Route: 031
     Dates: start: 20230914, end: 20240312
  2. EYLEA [Suspect]
     Active Substance: AFLIBERCEPT
     Indication: Retinal vein thrombosis
     Dosage: UNK, RIGHT EYE, 40MG/ML
     Dates: start: 20240312, end: 20240312

REACTIONS (2)
  - Hemiparaesthesia [Recovered/Resolved]
  - Cerebrovascular accident [Unknown]

NARRATIVE: CASE EVENT DATE: 20231201
